FAERS Safety Report 9323852 (Version 2)
Quarter: 2013Q3

REPORT INFORMATION
  Report Type: Spontaneous
  Country: US (occurrence: US)
  Receive Date: 20130603
  Receipt Date: 20130712
  Transmission Date: 20140515
  Serious: Yes (Other)
  Sender: FDA-Public Use
  Company Number: US-ASTELLAS-2013US005677

PATIENT
  Age: 77 Year
  Sex: Female
  Weight: 89 kg

DRUGS (5)
  1. VESICARE [Suspect]
     Indication: HYPERTONIC BLADDER
     Dosage: 5 MG, UID/QD
     Route: 048
     Dates: start: 20130425, end: 20130523
  2. ATORVASTATIN [Concomitant]
     Indication: BLOOD CHOLESTEROL
     Dosage: 40 MG, UID/QD
     Route: 048
  3. CELEBREX [Concomitant]
     Indication: ARTHRITIS
     Dosage: 200 MG, UID/QD
     Route: 048
  4. HYDROCHLOROTHIAZIDE W/QUINAPRIL    /06431501/ [Concomitant]
     Indication: BLOOD PRESSURE
     Dosage: 20 TO 25 MG DAILY
     Route: 048
  5. PREDNISONE [Concomitant]
     Indication: POLYMYALGIA RHEUMATICA
     Dosage: 10 MG, UID/QD
     Route: 048

REACTIONS (1)
  - Blood glucose increased [Recovered/Resolved]
